FAERS Safety Report 21917318 (Version 1)
Quarter: 2023Q1

REPORT INFORMATION
  Report Type: Other
  Country: CA (occurrence: CA)
  Receive Date: 20230126
  Receipt Date: 20230126
  Transmission Date: 20230418
  Serious: Yes (Hospitalization, Other)
  Sender: FDA-Public Use
  Company Number: CA-CELLTRION INC.-2023CA001217

PATIENT

DRUGS (24)
  1. RITUXIMAB [Suspect]
     Active Substance: RITUXIMAB
     Indication: Non-Hodgkin^s lymphoma recurrent
     Dosage: 780.0 MILLIGRAM, CYCLIC
  2. CARBOPLATIN [Suspect]
     Active Substance: CARBOPLATIN
     Indication: Non-Hodgkin^s lymphoma recurrent
     Dosage: 360.0 MILLIGRAM, CYCLIC
  3. ETOPOSIDE [Suspect]
     Active Substance: ETOPOSIDE
     Indication: Non-Hodgkin^s lymphoma recurrent
     Dosage: 166.0 MILLIGRAM, CYCLIC
  4. IFOSFAMIDE [Suspect]
     Active Substance: IFOSFAMIDE
     Indication: Non-Hodgkin^s lymphoma recurrent
     Dosage: 8300.0 MILLIGRAM, CYCLIC
  5. MESNA [Suspect]
     Active Substance: MESNA
     Indication: Non-Hodgkin^s lymphoma recurrent
     Dosage: 2000.0 MILLIGRAM, CYCLIC
  6. ACETAMINOPHEN [Concomitant]
     Active Substance: ACETAMINOPHEN
  7. ALLOPURINOL [Concomitant]
     Active Substance: ALLOPURINOL
  8. AMLODIPINE [Concomitant]
     Active Substance: AMLODIPINE BESYLATE
     Route: 065
  9. ATORVASTATIN [Concomitant]
     Active Substance: ATORVASTATIN
     Route: 065
  10. DEXAMETHASONE [Concomitant]
     Active Substance: DEXAMETHASONE
     Route: 065
  11. DEXILANT [Concomitant]
     Active Substance: DEXLANSOPRAZOLE
  12. DIPHENHYDRAMINE [Concomitant]
     Active Substance: DIPHENHYDRAMINE
  13. ELIQUIS [Concomitant]
     Active Substance: APIXABAN
  14. ENTECAVIR [Concomitant]
     Active Substance: ENTECAVIR
  15. FILGRASTIM [Concomitant]
     Active Substance: FILGRASTIM
  16. FUROSEMIDE [Concomitant]
     Active Substance: FUROSEMIDE
  17. GLICLAZIDE [Concomitant]
     Active Substance: GLICLAZIDE
  18. GRANISETRON [Concomitant]
     Active Substance: GRANISETRON
  19. JENTADUETO [Concomitant]
     Active Substance: LINAGLIPTIN\METFORMIN HYDROCHLORIDE
  20. LORAZEPAM [Concomitant]
     Active Substance: LORAZEPAM
  21. PROCHLORPERAZINE [Concomitant]
     Active Substance: PROCHLORPERAZINE
  22. TAMSULOSIN [Concomitant]
     Active Substance: TAMSULOSIN
  23. TEMAZEPAM [Concomitant]
     Active Substance: TEMAZEPAM
  24. VALACYCLOVIR [Concomitant]
     Active Substance: VALACYCLOVIR HYDROCHLORIDE

REACTIONS (4)
  - Febrile neutropenia [Recovered/Resolved]
  - Bacteraemia [Recovered/Resolved]
  - Colitis [Recovered/Resolved]
  - Overdose [Unknown]
